FAERS Safety Report 13881301 (Version 1)
Quarter: 2017Q3

REPORT INFORMATION
  Report Type: Spontaneous
  Country: US (occurrence: US)
  Receive Date: 20170818
  Receipt Date: 20170818
  Transmission Date: 20171127
  Serious: No
  Sender: FDA-Public Use
  Company Number: US-ENDO PHARMACEUTICALS INC-2017-001442

PATIENT
  Sex: Female
  Weight: 87.98 kg

DRUGS (15)
  1. SUMAVEL DOSEPRO [Suspect]
     Active Substance: SUMATRIPTAN SUCCINATE
     Dosage: TWICE A WEEK
     Route: 065
  2. LEVOTHYROXINE SODIUM TABLETS [Concomitant]
     Active Substance: LEVOTHYROXINE SODIUM
     Indication: HYPOTHYROIDISM
     Dosage: 0.112 MG, DAILY
     Route: 065
     Dates: start: 20130424
  3. ESZOPICLONE. [Concomitant]
     Active Substance: ESZOPICLONE
     Indication: INSOMNIA
     Dosage: 3 MG, DAILY
     Route: 065
     Dates: start: 2012
  4. SUMAVEL DOSEPRO [Suspect]
     Active Substance: SUMATRIPTAN SUCCINATE
     Indication: MIGRAINE
     Dosage: 6 MG, INTO THIGH PRN
     Route: 065
     Dates: start: 2015
  5. CAFERGOT [Concomitant]
     Active Substance: CAFFEINE\ERGOTAMINE TARTRATE
     Indication: MIGRAINE
  6. FLOVENT [Concomitant]
     Active Substance: FLUTICASONE PROPIONATE
     Indication: ASTHMA
  7. PROGESTERONE. [Concomitant]
     Active Substance: PROGESTERONE
     Indication: HORMONE THERAPY
     Dosage: 200 MG, ONCE PER NIGHT, DIFFERENT DOSAGES OFF AND ON
     Route: 065
     Dates: start: 2006
  8. PHENOBARBITAL. [Concomitant]
     Active Substance: PHENOBARBITAL
     Indication: MIGRAINE
     Dosage: 32.4, 1 TABLET AT NIGHT, SECOND TABLET IF BAD, AS NEEDED
     Route: 065
     Dates: start: 2011
  9. ESTRADIOL. [Concomitant]
     Active Substance: ESTRADIOL
     Indication: HORMONE THERAPY
  10. NALTREXONE [Concomitant]
     Active Substance: NALTREXONE
     Indication: IMMUNE SYSTEM DISORDER
     Dosage: 4.5 MG, DAILY
     Route: 065
     Dates: start: 2007
  11. ZOFRAN [Concomitant]
     Active Substance: ONDANSETRON HYDROCHLORIDE
     Indication: NAUSEA
  12. NASONEX [Concomitant]
     Active Substance: MOMETASONE FUROATE
     Indication: DRY MOUTH
  13. HCG [Concomitant]
     Active Substance: GONADOTROPHIN, CHORIONIC
     Indication: HORMONE THERAPY
  14. BOTOX [Concomitant]
     Active Substance: ONABOTULINUMTOXINA
     Indication: MIGRAINE
  15. EXCEDRIN [Concomitant]
     Active Substance: ACETAMINOPHEN\ASPIRIN\CAFFEINE
     Indication: MIGRAINE

REACTIONS (4)
  - Injection site erythema [Unknown]
  - Accidental exposure to product [Recovered/Resolved]
  - Device malfunction [Recovered/Resolved]
  - Injection site bruising [Unknown]
